FAERS Safety Report 6166575-X (Version None)
Quarter: 2009Q2

REPORT INFORMATION
  Report Type: 
  Country: None (occurrence: None)
  Receive Date: 20090422
  Receipt Date: 20090422
  Transmission Date: 20091009
  Serious: Yes (Life-Threatening, Hospitalization)
  Sender: FDA-Public Use
  Company Number: None

PATIENT
  Sex: Male
  Weight: 75.66 kg

DRUGS (1)
  1. LEXISCAN [Suspect]
     Indication: SCAN MYOCARDIAL PERFUSION
     Dosage: 0.4 MG -5ML- ONCE IV BOLUS; ONE TIME DOSE
     Route: 040

REACTIONS (2)
  - BRADYCARDIA [None]
  - CARDIO-RESPIRATORY ARREST [None]
